FAERS Safety Report 4845552-2 (Version None)
Quarter: 2005Q4

REPORT INFORMATION
  Report Type: 
  Country: None (occurrence: None)
  Receive Date: 20051201
  Receipt Date: 20051116
  Transmission Date: 20060501
  Serious: Yes (Other)
  Sender: FDA-Public Use
  Company Number: 2005BI019332

PATIENT
  Age: 53 Year
  Sex: Female
  Weight: 72.1219 kg

DRUGS (6)
  1. AVONEX [Suspect]
     Indication: MULTIPLE SCLEROSIS
     Dosage: 30 UG;QW;IM
     Route: 030
     Dates: start: 19990401
  2. PROVIGIL [Concomitant]
  3. CELEXA [Concomitant]
  4. CALCIUM GLUCONATE [Concomitant]
  5. HORMONE REPLACEMENT THERAPY [Concomitant]
  6. AMANTADINE HCL [Concomitant]

REACTIONS (5)
  - FATIGUE [None]
  - MALIGNANT PITUITARY TUMOUR [None]
  - NEOPLASM PROGRESSION [None]
  - NERVE COMPRESSION [None]
  - PITUITARY TUMOUR [None]
